FAERS Safety Report 4512270-X (Version None)
Quarter: 2004Q4

REPORT INFORMATION
  Report Type: 
  Country: None (occurrence: None)
  Receive Date: 20041123
  Receipt Date: 20041111
  Transmission Date: 20050328
  Serious: Yes (Disabling)
  Sender: FDA-Public Use
  Company Number: 2004SE06319

PATIENT
  Age: 75 Year
  Sex: Female
  Weight: 80 kg

DRUGS (3)
  1. NOLVADEX [Suspect]
     Indication: BREAST CANCER
     Dosage: 20 MG BID PO
     Route: 048
     Dates: start: 20010926
  2. TARKA [Concomitant]
  3. IBUPROFEN [Concomitant]

REACTIONS (1)
  - RETINAL TEAR [None]
